FAERS Safety Report 9272944 (Version 1)
Quarter: 2013Q2

REPORT INFORMATION
  Report Type: Spontaneous
  Country: US (occurrence: US)
  Receive Date: 20130506
  Receipt Date: 20130506
  Transmission Date: 20140414
  Serious: No
  Sender: FDA-Public Use
  Company Number: US-ASTRAZENECA-2013SE28150

PATIENT
  Sex: 0

DRUGS (2)
  1. SEROQUEL [Suspect]
     Dosage: 1000 MG DAILY (200 MG TID PLUS 400 MG QHS)
     Route: 048
  2. VARDENAFIL [Concomitant]

REACTIONS (1)
  - Electrocardiogram QT prolonged [Unknown]
